FAERS Safety Report 9197585 (Version 5)
Quarter: 2013Q3

REPORT INFORMATION
  Report Type: Spontaneous
  Country: JP (occurrence: JP)
  Receive Date: 20130328
  Receipt Date: 20130826
  Transmission Date: 20140515
  Serious: Yes (Hospitalization)
  Sender: FDA-Public Use
  Company Number: JP-GLAXOSMITHKLINE-B0878010A

PATIENT
  Age: 77 Year
  Sex: Male
  Weight: 48 kg

DRUGS (14)
  1. ZOVIRAX [Suspect]
     Indication: HERPES ZOSTER
     Dosage: 250MG TWICE PER DAY
     Route: 042
     Dates: start: 20130318, end: 20130321
  2. PREDONINE [Suspect]
     Indication: INTERSTITIAL LUNG DISEASE
     Dosage: 17.5MG PER DAY
     Route: 048
  3. LYRICA [Suspect]
     Indication: HERPES ZOSTER
     Dosage: 25MG TWICE PER DAY
     Route: 048
     Dates: start: 20130318
  4. SAMSCA [Concomitant]
     Route: 048
  5. BAYASPIRIN [Concomitant]
     Route: 048
  6. FUROSEMIDE [Concomitant]
     Route: 065
  7. ALDACTONE A [Concomitant]
     Route: 048
  8. SIGMART [Concomitant]
     Route: 065
  9. CRESTOR [Concomitant]
     Route: 048
  10. WARFARIN [Concomitant]
     Route: 048
  11. BONALON [Concomitant]
     Route: 065
  12. CELECOX [Concomitant]
     Indication: HERPES ZOSTER
     Route: 048
     Dates: start: 20130318
  13. NEXIUM [Concomitant]
     Route: 048
  14. BAKTAR [Concomitant]
     Route: 048

REACTIONS (4)
  - Depressed level of consciousness [Recovered/Resolved]
  - Hypercapnia [Recovered/Resolved]
  - Muscular weakness [Recovered/Resolved]
  - Tremor [Unknown]
